FAERS Safety Report 26099860 (Version 1)
Quarter: 2025Q4

REPORT INFORMATION
  Report Type: Spontaneous
  Country: JP (occurrence: JP)
  Receive Date: 20251128
  Receipt Date: 20251128
  Transmission Date: 20260119
  Serious: No
  Sender: ALKEM
  Company Number: JP-ALKEM LABORATORIES LIMITED-JP-ALKEM-2025-08681

PATIENT
  Age: 50 Year
  Sex: Female

DRUGS (14)
  1. OLANZAPINE [Suspect]
     Active Substance: OLANZAPINE
     Indication: Schizophrenia
     Dosage: 20 MG/DAY
     Route: 065
  2. CLOZAPINE [Suspect]
     Active Substance: CLOZAPINE
     Indication: Schizophrenia
     Dosage: 12.5 MG/DAY
     Route: 065
  3. CLOZAPINE [Suspect]
     Active Substance: CLOZAPINE
     Dosage: UNK (GRADUALLY INCREASED)
     Route: 065
  4. CLOZAPINE [Suspect]
     Active Substance: CLOZAPINE
     Dosage: 450 MG/DAY (TITRATED DOSE) (ON DAY 56)
     Route: 065
  5. CLOZAPINE [Suspect]
     Active Substance: CLOZAPINE
     Dosage: 400 MG/DAY (ON DAY 63)
     Route: 065
  6. BROMPERIDOL [Suspect]
     Active Substance: BROMPERIDOL
     Indication: Schizophrenia
     Dosage: 12 MG/DAY
     Route: 065
  7. HALOPERIDOL [Suspect]
     Active Substance: HALOPERIDOL
     Indication: Schizophrenia
     Dosage: 12 MG/DAY
     Route: 065
  8. RISPERIDONE [Suspect]
     Active Substance: RISPERIDONE
     Indication: Schizophrenia
     Dosage: 12 MG/DAY
     Route: 065
  9. ADENINE [Concomitant]
     Active Substance: ADENINE
     Indication: White blood cell count increased
     Dosage: 60 MG/DAY
     Route: 065
  10. ADENINE [Concomitant]
     Active Substance: ADENINE
     Indication: Neutrophil count increased
  11. CEPHARANTHINE [Concomitant]
     Active Substance: CEPHARANTHINE
     Indication: White blood cell count increased
     Dosage: 6 MG/DAY
     Route: 065
  12. CEPHARANTHINE [Concomitant]
     Active Substance: CEPHARANTHINE
     Indication: Neutrophil count increased
  13. LITHIUM CARBONATE [Concomitant]
     Active Substance: LITHIUM CARBONATE
     Indication: White blood cell count increased
     Dosage: 600 MG/DAY
     Route: 065
  14. LITHIUM CARBONATE [Concomitant]
     Active Substance: LITHIUM CARBONATE
     Indication: Neutrophil count increased

REACTIONS (3)
  - Somnolence [Unknown]
  - Tremor [Unknown]
  - Drug ineffective [Unknown]
